FAERS Safety Report 13915399 (Version 1)
Quarter: 2017Q3

REPORT INFORMATION
  Report Type: Spontaneous
  Country: US (occurrence: US)
  Receive Date: 20170828
  Receipt Date: 20170828
  Transmission Date: 20171127
  Serious: Yes (Other)
  Sender: FDA-Public Use
  Company Number: None

PATIENT
  Age: 21 Month
  Sex: Female
  Weight: 12.6 kg

DRUGS (1)
  1. SENNA SYRUP [Suspect]
     Active Substance: SENNOSIDES
     Indication: CONSTIPATION
     Dosage: QUANTITY:10 ML; AT BEDTIME?
     Route: 048
     Dates: start: 20170802, end: 20170827

REACTIONS (4)
  - Bowel movement irregularity [None]
  - Rectal haemorrhage [None]
  - Dyschezia [None]
  - Condition aggravated [None]

NARRATIVE: CASE EVENT DATE: 20170815
